FAERS Safety Report 6150266-5 (Version None)
Quarter: 2009Q2

REPORT INFORMATION
  Report Type: 
  Country: None (occurrence: None)
  Receive Date: 20090407
  Receipt Date: 20090407
  Transmission Date: 20091009
  Serious: Yes (Life-Threatening, Hospitalization, Disabling, Other)
  Sender: FDA-Public Use
  Company Number: None

PATIENT
  Age: 37 Year
  Sex: Male
  Weight: 83.9154 kg

DRUGS (1)
  1. PAXIL CR [Suspect]
     Indication: DEPRESSION
     Dates: start: 20020501, end: 20030701

REACTIONS (2)
  - MALAISE [None]
  - PRODUCT QUALITY ISSUE [None]
